FAERS Safety Report 7286800-1 (Version None)
Quarter: 2011Q1

REPORT INFORMATION
  Report Type: 
  Country: None (occurrence: None)
  Receive Date: 20110210
  Receipt Date: 20110202
  Transmission Date: 20110831
  Serious: Yes (Other)
  Sender: FDA-Public Use
  Company Number: FR-GILEAD-2007-0014677

PATIENT
  Sex: Female
  Weight: 72 kg

DRUGS (6)
  1. DARUNAVIR [Concomitant]
     Indication: HIV INFECTION
     Route: 048
     Dates: start: 20050415, end: 20070913
  2. FUZEON [Concomitant]
  3. NORVIR [Concomitant]
     Indication: HIV INFECTION
     Route: 048
     Dates: start: 20050415
  4. ZELITREX [Concomitant]
     Indication: HERPES VIRUS INFECTION
     Route: 048
     Dates: start: 20030101
  5. TRUVADA [Suspect]
     Indication: HIV INFECTION
     Route: 048
     Dates: start: 20050101
  6. DARUNAVIR [Concomitant]
     Route: 048
     Dates: start: 20070914

REACTIONS (2)
  - BLIGHTED OVUM [None]
  - ABORTION SPONTANEOUS [None]
